FAERS Safety Report 4527074-1 (Version None)
Quarter: 2004Q4

REPORT INFORMATION
  Report Type: 
  Country: None (occurrence: None)
  Receive Date: 20041129
  Receipt Date: 20040507
  Transmission Date: 20050328
  Serious: Yes (Hospitalization)
  Sender: FDA-Public Use
  Company Number: USA040360978

PATIENT
  Age: 58 Year
  Sex: Male
  Weight: 72 kg

DRUGS (5)
  1. ZYPREXA [Suspect]
     Indication: BIPOLAR DISORDER
     Dosage: 20 MG/AT BEDTIME
     Dates: start: 19930101, end: 20040305
  2. ZYPREXA [Suspect]
     Indication: PSYCHOTIC DISORDER
     Dosage: 20 MG/AT BEDTIME
     Dates: start: 19930101, end: 20040305
  3. ZYPREXA [Suspect]
     Indication: SCHIZOAFFECTIVE DISORDER
     Dosage: 20 MG/AT BEDTIME
     Dates: start: 19930101, end: 20040305
  4. HALDOL [Concomitant]
  5. ATIVAN [Concomitant]

REACTIONS (2)
  - BIPOLAR I DISORDER [None]
  - DIABETES MELLITUS [None]
